FAERS Safety Report 8227212-3 (Version None)
Quarter: 2012Q1

REPORT INFORMATION
  Report Type: 
  Country: None (occurrence: None)
  Receive Date: 20120307
  Receipt Date: 20100308
  Transmission Date: 20120608
  Serious: Yes (Other)
  Sender: FDA-Public Use
  Company Number: PHEH2010US01806

PATIENT
  Age: 74 Year
  Sex: Male

DRUGS (1)
  1. AFINITOR [Suspect]
     Indication: RENAL CELL CARCINOMA
     Dosage: 10 MG/DAY,ORAL 5 MG, ORAL
     Route: 048
     Dates: start: 20091201, end: 20100101

REACTIONS (2)
  - PANCYTOPENIA [None]
  - NEUTROPHIL COUNT DECREASED [None]
